FAERS Safety Report 8618673-6 (Version None)
Quarter: 2012Q3

REPORT INFORMATION
  Report Type: 
  Country: None (occurrence: None)
  Receive Date: 20120810
  Receipt Date: 20120726
  Transmission Date: 20120928
  Serious: Yes (Other)
  Sender: FDA-Public Use
  Company Number: TPA2012A01308

PATIENT
  Age: 69 Year
  Sex: Male
  Weight: 97.5234 kg

DRUGS (10)
  1. STARLIX [Concomitant]
  2. DIABETA [Concomitant]
  3. JANUVIA [Concomitant]
  4. MACROBID [Concomitant]
  5. ACTOS [Suspect]
     Indication: TYPE 2 DIABETES MELLITUS
     Dates: start: 20061001, end: 20080501
  6. AMARYL [Concomitant]
  7. LEVEMIR [Concomitant]
  8. AVANDIA [Concomitant]
  9. PRANDIN (DEFLAZACODORT) [Concomitant]
  10. LISPRO (INSULIN) [Concomitant]

REACTIONS (1)
  - BLADDER CANCER [None]
